FAERS Safety Report 8045842-9 (Version None)
Quarter: 2012Q1

REPORT INFORMATION
  Report Type: 
  Country: None (occurrence: None)
  Receive Date: 20120113
  Receipt Date: 20120111
  Transmission Date: 20120608
  Serious: Yes (Other)
  Sender: FDA-Public Use
  Company Number: CHPA2012GB000882

PATIENT
  Age: 17 Year
  Sex: Female
  Weight: 53.97 kg

DRUGS (5)
  1. NICOTINE [Suspect]
     Indication: SMOKING CESSATION THERAPY
     Dosage: 2 MG, 6QD
     Dates: start: 20111215, end: 20111222
  2. NICOTINE [Suspect]
     Indication: SMOKING CESSATION THERAPY
     Dosage: 21 MG, QD
     Route: 062
     Dates: start: 20111209
  3. IRON [Concomitant]
     Dosage: 1 DF, QD
     Route: 048
     Dates: start: 20111101
  4. DEPO-PROVERA [Concomitant]
     Indication: CONTRACEPTION
     Dosage: UNK, UNK
     Route: 058
     Dates: start: 20101201
  5. MULTI-VITAMINS [Concomitant]
     Dosage: 1 DF, QD
     Route: 048
     Dates: start: 20110101

REACTIONS (4)
  - TREATMENT NONCOMPLIANCE [None]
  - INCORRECT DOSE ADMINISTERED [None]
  - DYSPNOEA [None]
  - OVERDOSE [None]
